FAERS Safety Report 12542074 (Version 2)
Quarter: 2016Q3

REPORT INFORMATION
  Report Type: Report from Study
  Country: BR (occurrence: BR)
  Receive Date: 20160708
  Receipt Date: 20160804
  Transmission Date: 20161109
  Serious: Yes (Other)
  Sender: FDA-Public Use
  Company Number: PHHY2016BR093127

PATIENT
  Age: 55 Year
  Sex: Male
  Weight: 185 kg

DRUGS (1)
  1. ONBREZ BREEZHALER [Suspect]
     Active Substance: INDACATEROL
     Indication: EMPHYSEMA
     Dosage: UNK UNK, TID
     Route: 055

REACTIONS (16)
  - Drug dependence [Unknown]
  - Lung disorder [Unknown]
  - Weight bearing difficulty [Unknown]
  - Emphysema [Unknown]
  - Fracture [Unknown]
  - Malaise [Unknown]
  - Concomitant disease aggravated [Unknown]
  - Condition aggravated [Unknown]
  - Dysstasia [Unknown]
  - Gait disturbance [Unknown]
  - Exercise tolerance decreased [Unknown]
  - Dyspnoea [Unknown]
  - Limb injury [Unknown]
  - Dyspnoea exertional [Unknown]
  - Pain in extremity [Unknown]
  - Fatigue [Recovering/Resolving]
